FAERS Safety Report 6350426-4 (Version None)
Quarter: 2009Q3

REPORT INFORMATION
  Report Type: 
  Country: None (occurrence: None)
  Receive Date: 20090911
  Receipt Date: 20090622
  Transmission Date: 20100115
  Serious: No
  Sender: FDA-Public Use
  Company Number: US-ABBOTT-07P-163-0362268-00

PATIENT
  Sex: Female
  Weight: 59.02 kg

DRUGS (11)
  1. HUMIRA [Suspect]
     Indication: RHEUMATOID ARTHRITIS
     Route: 058
     Dates: start: 20070313
  2. ATORVASTATIN CALCIUM [Concomitant]
     Indication: BLOOD CHOLESTEROL
     Route: 048
  3. ESOMEPRAZOLE [Concomitant]
     Indication: GASTRIC ULCER PERFORATION
     Route: 048
  4. DICLOFENAC SODIUM [Concomitant]
     Indication: ARTHRITIS
     Route: 048
     Dates: end: 20050101
  5. MELOXICAM [Concomitant]
     Indication: ARTHRITIS
     Route: 048
  6. TRAMADOL HCL [Concomitant]
     Indication: ARTHRITIS
     Route: 048
  7. PREDNISONE [Concomitant]
     Indication: ARTHRITIS
     Route: 048
  8. METHOTREXATE [Concomitant]
     Indication: ARTHRITIS
     Route: 048
  9. METOPROLOL SUCCINATE [Concomitant]
     Indication: BLOOD PRESSURE
     Route: 048
  10. LOSARTAN POTASSIUM [Concomitant]
     Indication: BLOOD PRESSURE
     Route: 048
  11. FOLIC ACID [Concomitant]
     Indication: DRUG USE FOR UNKNOWN INDICATION
     Route: 048

REACTIONS (1)
  - INCORRECT DOSE ADMINISTERED [None]
